FAERS Safety Report 6097831-1 (Version None)
Quarter: 2009Q1

REPORT INFORMATION
  Report Type: 
  Country: None (occurrence: None)
  Receive Date: 20090227
  Receipt Date: 20090219
  Transmission Date: 20090719
  Serious: Yes (Death)
  Sender: FDA-Public Use
  Company Number: US-ABBOTT-09P-163-0558254-00

PATIENT
  Sex: Male

DRUGS (2)
  1. DEPAKOTE [Suspect]
     Indication: DEMENTIA
     Route: 048
     Dates: start: 20071203, end: 20080327
  2. DEPAKOTE [Suspect]
     Indication: ABNORMAL BEHAVIOUR

REACTIONS (2)
  - MEDICATION RESIDUE [None]
  - RENAL FAILURE [None]
